FAERS Safety Report 23522754 (Version 1)
Quarter: 2024Q1

REPORT INFORMATION
  Report Type: Spontaneous
  Country: US (occurrence: None)
  Receive Date: 20240214
  Receipt Date: 20240214
  Transmission Date: 20240410
  Serious: Yes (Hospitalization)
  Sender: FDA-Public Use
  Company Number: None

PATIENT
  Age: 41 Year
  Sex: Female
  Weight: 68 kg

DRUGS (1)
  1. CYTARABINE [Suspect]
     Active Substance: CYTARABINE
     Dates: end: 20240127

REACTIONS (9)
  - Pancreatitis acute [None]
  - Nausea [None]
  - Vomiting [None]
  - Abdominal pain [None]
  - Arthralgia [None]
  - Dyspnoea [None]
  - Vasculitis [None]
  - Stenosis [None]
  - Paraesthesia [None]

NARRATIVE: CASE EVENT DATE: 20240212
